FAERS Safety Report 9037244 (Version 1)
Quarter: 2013Q1

REPORT INFORMATION
  Report Type: Spontaneous
  Country: US (occurrence: US)
  Receive Date: 20130129
  Receipt Date: 20130129
  Transmission Date: 20140127
  Serious: No
  Sender: FDA-Public Use
  Company Number: US-009507513-1301USA009462

PATIENT
  Age: 26 Year
  Sex: Female

DRUGS (1)
  1. PREGNYL [Suspect]
     Dosage: UNK

REACTIONS (3)
  - Product packaging quantity issue [Unknown]
  - Underdose [Unknown]
  - No adverse event [Unknown]
